FAERS Safety Report 13443844 (Version 1)
Quarter: 2017Q2

REPORT INFORMATION
  Report Type: Spontaneous
  Country: US (occurrence: US)
  Receive Date: 20170414
  Receipt Date: 20170414
  Transmission Date: 20170830
  Serious: Yes (Other)
  Sender: FDA-Public Use
  Company Number: US-JNJFOC-2011003938

PATIENT
  Age: 3 Year
  Sex: Male

DRUGS (2)
  1. DIPHENHYDRAMINE. [Suspect]
     Active Substance: DIPHENHYDRAMINE
     Route: 048
  2. DIPHENHYDRAMINE. [Suspect]
     Active Substance: DIPHENHYDRAMINE
     Indication: ACCIDENTAL EXPOSURE TO PRODUCT
     Dosage: DAILY DOSE TEXT: 8.05 MG/KG
     Route: 048

REACTIONS (1)
  - Accidental exposure to product by child [Recovered/Resolved]
